FAERS Safety Report 13273905 (Version 1)
Quarter: 2017Q1

REPORT INFORMATION
  Report Type: Report from Study
  Country: CA (occurrence: CA)
  Receive Date: 20170227
  Receipt Date: 20170227
  Transmission Date: 20170428
  Serious: Yes (Other)
  Sender: FDA-Public Use
  Company Number: CA-JNJFOC-20170222893

PATIENT
  Age: 64 Year
  Sex: Male
  Weight: 80.4 kg

DRUGS (1)
  1. REMICADE [Suspect]
     Active Substance: INFLIXIMAB
     Indication: COLITIS ULCERATIVE
     Route: 042

REACTIONS (3)
  - Influenza like illness [Unknown]
  - Malaise [Unknown]
  - Radiotherapy [Unknown]

NARRATIVE: CASE EVENT DATE: 20170216
